FAERS Safety Report 9448349 (Version 2)
Quarter: 2013Q3

REPORT INFORMATION
  Report Type: Spontaneous
  Country: CO (occurrence: CO)
  Receive Date: 20130808
  Receipt Date: 20130819
  Transmission Date: 20140515
  Serious: Yes (Other)
  Sender: FDA-Public Use
  Company Number: CO-PFIZER INC-2013229110

PATIENT
  Sex: Male

DRUGS (1)
  1. CARDURAN [Suspect]
     Indication: BENIGN PROSTATIC HYPERPLASIA
     Dosage: UNK, 1X/DAY
     Route: 048
     Dates: start: 201306, end: 201307

REACTIONS (6)
  - Arthritis [Recovered/Resolved]
  - Eye disorder [Recovered/Resolved]
  - Pain in extremity [Recovered/Resolved]
  - Tendon pain [Recovered/Resolved]
  - Myalgia [Recovered/Resolved]
  - Vision blurred [Recovered/Resolved]
